FAERS Safety Report 5955419-4 (Version None)
Quarter: 2008Q4

REPORT INFORMATION
  Report Type: 
  Country: None (occurrence: None)
  Receive Date: 20081117
  Receipt Date: 20081103
  Transmission Date: 20090506
  Serious: Yes (Other)
  Sender: FDA-Public Use
  Company Number: GH-ROCHE-596767

PATIENT

DRUGS (3)
  1. PYRIMETHAMINE/SULFADOXINE [Suspect]
     Indication: MALARIA PROPHYLAXIS
     Dosage: SINGLE DOSE. WOMEN RECEIVED UP TO 3 COURSES WITH A MINIMUM INTERVAL OF 4 WEEKS BETWEEN COURSES.
     Route: 064
  2. IRON SUPPLEMENT NOS [Concomitant]
  3. FOLIC ACID [Concomitant]

REACTIONS (1)
  - STILLBIRTH [None]
